FAERS Safety Report 9735400 (Version 1)
Quarter: 2013Q4

REPORT INFORMATION
  Report Type: Spontaneous
  Country: US (occurrence: US)
  Receive Date: 20131206
  Receipt Date: 20131206
  Transmission Date: 20140711
  Serious: No
  Sender: FDA-Public Use
  Company Number: US-009507513-1311USA011821

PATIENT
  Sex: Female

DRUGS (2)
  1. SINGULAIR [Suspect]
     Dosage: UNK
     Route: 048
     Dates: start: 2000, end: 20131123
  2. SYNTHROID [Concomitant]

REACTIONS (7)
  - Dyspnoea [Recovering/Resolving]
  - Headache [Recovering/Resolving]
  - Insomnia [Recovering/Resolving]
  - Contusion [Recovering/Resolving]
  - Asthenia [Recovering/Resolving]
  - Incision site inflammation [Recovering/Resolving]
  - Rash [Recovering/Resolving]
